FAERS Safety Report 8251030-3 (Version None)
Quarter: 2012Q2

REPORT INFORMATION
  Report Type: 
  Country: None (occurrence: None)
  Receive Date: 20120402
  Receipt Date: 20120326
  Transmission Date: 20120825
  Serious: Yes (Hospitalization)
  Sender: FDA-Public Use
  Company Number: US-BAYER-2011-111455

PATIENT
  Age: 22 Year
  Sex: Female
  Weight: 73 kg

DRUGS (3)
  1. YASMIN [Suspect]
     Indication: CONTRACEPTION
     Dosage: UNK
     Route: 048
     Dates: start: 20110201, end: 20110401
  2. PLAN B [Concomitant]
     Dosage: UNK
     Dates: start: 20110705
  3. IBUPROFEN [Concomitant]

REACTIONS (3)
  - PULMONARY EMBOLISM [None]
  - CHEST PAIN [None]
  - PAIN IN EXTREMITY [None]
